FAERS Safety Report 8083107-X (Version None)
Quarter: 2012Q1

REPORT INFORMATION
  Report Type: 
  Country: None (occurrence: None)
  Receive Date: 20120127
  Receipt Date: 20110228
  Transmission Date: 20120608
  Serious: No
  Sender: FDA-Public Use
  Company Number: US-ABBOTT-11P-163-0708271-00

PATIENT
  Age: 76 Year
  Sex: Female

DRUGS (9)
  1. STOOL SOFTENER [Concomitant]
     Indication: PRODUCT USED FOR UNKNOWN INDICATION
  2. METHOTREXATE [Concomitant]
     Indication: RHEUMATOID ARTHRITIS
     Dosage: 2.5MG X 4 TABLETS WEEKLY
  3. MICARDIS [Concomitant]
     Indication: HYPERTENSION
  4. METAMUCIL-2 [Concomitant]
     Indication: PRODUCT USED FOR UNKNOWN INDICATION
  5. MULTI-VITAMIN [Concomitant]
     Indication: PRODUCT USED FOR UNKNOWN INDICATION
  6. HUMIRA [Suspect]
     Indication: RHEUMATOID ARTHRITIS
     Route: 058
     Dates: start: 20070101, end: 20100901
  7. ADVAIR DISKUS 100/50 [Concomitant]
     Indication: EMPHYSEMA
  8. ALBUTEROL [Concomitant]
     Indication: EMPHYSEMA
     Dosage: BY NEBULIZER
  9. FOLIC ACID [Concomitant]
     Indication: PRODUCT USED FOR UNKNOWN INDICATION

REACTIONS (4)
  - ABDOMINAL PAIN UPPER [None]
  - PYREXIA [None]
  - NASOPHARYNGITIS [None]
  - URINARY TRACT INFECTION [None]
